FAERS Safety Report 14665958 (Version 1)
Quarter: 2018Q1

REPORT INFORMATION
  Report Type: Report from Study
  Country: US (occurrence: US)
  Receive Date: 20180321
  Receipt Date: 20180321
  Transmission Date: 20180509
  Serious: Yes (Other)
  Sender: FDA-Public Use
  Company Number: US-MALLINCKRODT-T201701260

PATIENT
  Age: 67 Year
  Sex: Male

DRUGS (2)
  1. REPOSITORY CORTICOTROPIN INJECTION [Suspect]
     Active Substance: CORTICOTROPIN
     Dosage: 80 UNITS, TWICE A WEEK
     Route: 058
     Dates: start: 2017, end: 201705
  2. REPOSITORY CORTICOTROPIN INJECTION [Suspect]
     Active Substance: CORTICOTROPIN
     Indication: IGA NEPHROPATHY
     Dosage: 40 UNITS, TWICE A WEEK FOR ONE MONTH
     Route: 058
     Dates: start: 20161229, end: 201701

REACTIONS (11)
  - Hyperglycaemia [Recovered/Resolved]
  - Asthenia [Not Recovered/Not Resolved]
  - Muscular weakness [Recovered/Resolved]
  - Weight decreased [Unknown]
  - Myalgia [Unknown]
  - Somnolence [Recovered/Resolved]
  - Skin striae [Recovered/Resolved]
  - Proteinuria [Unknown]
  - Insomnia [Recovered/Resolved]
  - Constipation [Recovered/Resolved]
  - White blood cell count increased [Recovered/Resolved]

NARRATIVE: CASE EVENT DATE: 201701
